FAERS Safety Report 11103499 (Version 1)
Quarter: 2015Q2

REPORT INFORMATION
  Report Type: Spontaneous
  Country: US (occurrence: None)
  Receive Date: 20150508
  Receipt Date: 20150508
  Transmission Date: 20150821
  Serious: No
  Sender: FDA-Public Use
  Company Number: None

PATIENT
  Age: 30 Year
  Sex: Female

DRUGS (1)
  1. MAKENA [Suspect]
     Active Substance: HYDROXYPROGESTERONE CAPROATE
     Dosage: STRENGTH: 250  DOSE FORM: INJECTABLE  INTRAMUSCULAR 030 FREQUENCY: WEEKLY
     Route: 030

REACTIONS (2)
  - Adverse drug reaction [None]
  - Feeling abnormal [None]

NARRATIVE: CASE EVENT DATE: 20150505
